FAERS Safety Report 8462402-6 (Version None)
Quarter: 2012Q2

REPORT INFORMATION
  Report Type: 
  Country: None (occurrence: None)
  Receive Date: 20120625
  Receipt Date: 20120613
  Transmission Date: 20120825
  Serious: Yes (Other)
  Sender: FDA-Public Use
  Company Number: JP-ASTRAZENECA-2012SE41363

PATIENT
  Age: 90 Year
  Sex: Female

DRUGS (5)
  1. MEMANTINE HCL [Concomitant]
  2. SEROQUEL [Suspect]
     Indication: AGGRESSION
     Dosage: 25 MG AT BEDTIME AROUND 9.00 AS NEEDED BASIS
     Route: 048
  3. ZOLPIDEM [Concomitant]
  4. SEROQUEL [Suspect]
     Indication: INSOMNIA
     Dosage: 25 MG AT BEDTIME AROUND 9.00 AS NEEDED BASIS
     Route: 048
  5. PROMAZINE HYDROCHLORIDE [Suspect]
     Indication: INSOMNIA
     Dosage: 12.5 MG AT BEDTIME AROUND 9.00 ON AS EEDED BASIS
     Route: 048

REACTIONS (2)
  - OFF LABEL USE [None]
  - IMMOBILE [None]
